FAERS Safety Report 11883420 (Version 1)
Quarter: 2015Q4

REPORT INFORMATION
  Report Type: Other
  Country: IT (occurrence: IT)
  Receive Date: 20151231
  Receipt Date: 20151231
  Transmission Date: 20160305
  Serious: Yes (Other)
  Sender: FDA-Public Use
  Company Number: IT-VALIDUS PHARMACEUTICALS LLC-IT-2015VAL000816

PATIENT

DRUGS (9)
  1. CATAPRESAN                         /00171101/ [Concomitant]
     Active Substance: CLONIDINE
     Indication: PRODUCT USED FOR UNKNOWN INDICATION
     Dosage: 150 MICROGRAM TABLETS, 30 TABLETS
     Route: 048
  2. LOBIVON [Concomitant]
     Active Substance: NEBIVOLOL HYDROCHLORIDE
     Indication: PRODUCT USED FOR UNKNOWN INDICATION
     Dosage: 28 TABLETS 5 MG
     Route: 048
  3. ZANEDIP [Concomitant]
     Active Substance: LERCANIDIPINE HYDROCHLORIDE
     Indication: PRODUCT USED FOR UNKNOWN INDICATION
     Dosage: 14 X 20 MG
     Route: 048
  4. LASIX [Concomitant]
     Active Substance: FUROSEMIDE
     Indication: PRODUCT USED FOR UNKNOWN INDICATION
     Dosage: 25 MG, UNK; 30 TABLETS
     Route: 048
  5. EFFEXOR [Concomitant]
     Active Substance: VENLAFAXINE HYDROCHLORIDE
     Indication: PRODUCT USED FOR UNKNOWN INDICATION
     Dosage: 37.5 MG PROLONGED-RELEASE HARD CAPSULES 28 CAPSU
     Route: 048
  6. CLEXANE [Concomitant]
     Active Substance: ENOXAPARIN SODIUM
     Indication: PRODUCT USED FOR UNKNOWN INDICATION
     Dosage: 6 X 0.4 ML PRE-FILLED SYRINGES
  7. CALCITRIOL. [Suspect]
     Active Substance: CALCITRIOL
     Indication: PRODUCT USED FOR UNKNOWN INDICATION
     Dosage: 0.25 ?G, QD
     Route: 048
     Dates: start: 20151001, end: 20151107
  8. MADOPAR [Concomitant]
     Active Substance: BENSERAZIDE HYDROCHLORIDE\LEVODOPA
     Indication: PRODUCT USED FOR UNKNOWN INDICATION
     Dosage: 100 MG + 25 MG
     Route: 048
  9. CALCIUM CARBONATE. [Suspect]
     Active Substance: CALCIUM CARBONATE
     Indication: PRODUCT USED FOR UNKNOWN INDICATION
     Dosage: 1 DF, QD
     Route: 048
     Dates: start: 20151001, end: 20151107

REACTIONS (3)
  - Psychomotor retardation [Recovering/Resolving]
  - Hypotension [Recovering/Resolving]
  - Hypercalcaemia [Recovering/Resolving]

NARRATIVE: CASE EVENT DATE: 20151107
